FAERS Safety Report 6410405-5 (Version None)
Quarter: 2009Q4

REPORT INFORMATION
  Report Type: 
  Country: None (occurrence: None)
  Receive Date: 20091022
  Receipt Date: 20090817
  Transmission Date: 20100525
  Serious: Yes (Hospitalization)
  Sender: FDA-Public Use
  Company Number: FR-JNJFOC-20090805115

PATIENT
  Age: 23 Year
  Sex: Male

DRUGS (3)
  1. TAVANIC [Suspect]
     Indication: BRONCHITIS
     Route: 048
  2. CLAMOXYL [Suspect]
     Indication: BRONCHITIS
     Route: 065
  3. FLUINDIONE [Concomitant]
     Indication: CARDIAC VALVE PROSTHESIS USER
     Route: 048

REACTIONS (1)
  - HEPATOCELLULAR INJURY [None]
